FAERS Safety Report 15860541 (Version 1)
Quarter: 2019Q1

REPORT INFORMATION
  Report Type: Spontaneous
  Country: FR (occurrence: FR)
  Receive Date: 20190123
  Receipt Date: 20190123
  Transmission Date: 20190417
  Serious: Yes (Hospitalization)
  Sender: FDA-Public Use
  Company Number: FR-PROVELL PHARMACEUTICALS-2061672

PATIENT
  Age: 75 Year
  Sex: Female

DRUGS (4)
  1. EUTHYROX [Suspect]
     Active Substance: LEVOTHYROXINE SODIUM
     Indication: POST PROCEDURAL HYPOTHYROIDISM
     Dates: start: 201812
  2. ELIQUIS [Concomitant]
     Active Substance: APIXABAN
  3. SEROPLEX [Concomitant]
     Active Substance: ESCITALOPRAM OXALATE
  4. BRINTELLIX [Concomitant]
     Active Substance: VORTIOXETINE HYDROBROMIDE

REACTIONS (7)
  - Fatigue [None]
  - Blood pressure increased [None]
  - Speech disorder [None]
  - Anaemia [None]
  - Depression [None]
  - Blood thyroid stimulating hormone increased [None]
  - Nasopharyngitis [None]

NARRATIVE: CASE EVENT DATE: 201812
